FAERS Safety Report 5175597-7 (Version None)
Quarter: 2006Q4

REPORT INFORMATION
  Report Type: 
  Country: None (occurrence: None)
  Receive Date: 20061215
  Receipt Date: 20061120
  Transmission Date: 20070319
  Serious: Yes (Other)
  Sender: FDA-Public Use
  Company Number: PHFR2006GB03438

PATIENT

DRUGS (2)
  1. IMATINIB MESYLATE [Suspect]
     Indication: GASTROINTESTINAL STROMAL TUMOUR
     Dosage: 400MG / DAY
     Route: 048
     Dates: start: 20040407
  2. MOVICOL [Concomitant]
     Indication: CONSTIPATION
     Route: 048

REACTIONS (6)
  - EYE MOVEMENT DISORDER [None]
  - EYELID OEDEMA [None]
  - GLAUCOMA [None]
  - LACRIMAL GLAND ENLARGEMENT [None]
  - LACRIMATION INCREASED [None]
  - PERIORBITAL OEDEMA [None]
